FAERS Safety Report 5502543-6 (Version None)
Quarter: 2007Q4

REPORT INFORMATION
  Report Type: 
  Country: None (occurrence: None)
  Receive Date: 20071030
  Receipt Date: 20071026
  Transmission Date: 20080405
  Serious: No
  Sender: FDA-Public Use
  Company Number: US-BOEHRINGER INGELHEIM PHARMACEUTICALS, INC.-2007-BP-21631BP

PATIENT
  Sex: Female

DRUGS (2)
  1. MIRAPEX [Suspect]
     Indication: RESTLESS LEGS SYNDROME
     Route: 048
     Dates: start: 20070501
  2. JUVADERM [Concomitant]
     Indication: SKIN WRINKLING
     Dates: start: 20020901

REACTIONS (6)
  - CONTUSION [None]
  - DIARRHOEA [None]
  - HERPES ZOSTER [None]
  - HYPERHIDROSIS [None]
  - MUSCLE SPASMS [None]
  - PRURITUS [None]
